FAERS Safety Report 11950465 (Version 1)
Quarter: 2016Q1

REPORT INFORMATION
  Report Type: Spontaneous
  Country: None (occurrence: None)
  Receive Date: 20160121
  Receipt Date: 20160121
  Transmission Date: 20160526
  Serious: No
  Sender: FDA-Public Use
  Company Number: None

PATIENT
  Sex: Female

DRUGS (2)
  1. METFORMIN [Suspect]
     Active Substance: METFORMIN HYDROCHLORIDE
  2. PREDNISONE. [Suspect]
     Active Substance: PREDNISONE

REACTIONS (5)
  - Systemic lupus erythematosus [None]
  - Diabetes mellitus [None]
  - Renal glycosuria [None]
  - Cataract [None]
  - Blood glucose decreased [None]
